FAERS Safety Report 6580409-0 (Version None)
Quarter: 2010Q1

REPORT INFORMATION
  Report Type: 
  Country: None (occurrence: None)
  Receive Date: 20100212
  Receipt Date: 20100208
  Transmission Date: 20100710
  Serious: Yes (Death, Hospitalization)
  Sender: FDA-Public Use
  Company Number: GR-ABBOTT-10P-066-0624708-00

PATIENT
  Age: 68 Year
  Sex: Female
  Weight: 38 kg

DRUGS (9)
  1. ZEMPLAR [Suspect]
     Indication: HYPERPARATHYROIDISM SECONDARY
     Route: 042
     Dates: start: 20080401, end: 20100128
  2. ANGORON [Concomitant]
     Indication: CORONARY ARTERY DISEASE
     Route: 048
     Dates: start: 20080101, end: 20100128
  3. ATACAND [Concomitant]
     Indication: HYPERTENSION
     Route: 048
     Dates: start: 20080101, end: 20100127
  4. DIPEN [Concomitant]
     Indication: HYPERTENSION
     Route: 048
     Dates: start: 20080101, end: 20100127
  5. FILLICINE [Concomitant]
     Indication: ANAEMIA
     Route: 048
     Dates: start: 20080101, end: 20100128
  6. ARANESP [Concomitant]
     Indication: NEPHROGENIC ANAEMIA
     Route: 042
     Dates: start: 20080101, end: 20100128
  7. VENOFER [Concomitant]
     Indication: NEPHROGENIC ANAEMIA
     Route: 042
     Dates: start: 20080101, end: 20100128
  8. TICLODONE [Concomitant]
     Indication: ANTICOAGULANT THERAPY
     Route: 048
     Dates: start: 20080101, end: 20100128
  9. RENAGEL [Concomitant]
     Indication: HYPOPHOSPHATAEMIA
     Route: 048
     Dates: start: 20080101, end: 20100128

REACTIONS (5)
  - ASTHENIA [None]
  - CARDIAC ARREST [None]
  - HYPOTENSION [None]
  - MALAISE [None]
  - SEPTIC SHOCK [None]
